FAERS Safety Report 6283896-0 (Version None)
Quarter: 2009Q3

REPORT INFORMATION
  Report Type: 
  Country: None (occurrence: None)
  Receive Date: 20090723
  Receipt Date: 20090723
  Transmission Date: 20100115
  Serious: Yes (Death)
  Sender: FDA-Public Use
  Company Number: None

PATIENT
  Age: 39 Year
  Sex: Male
  Weight: 42 kg

DRUGS (8)
  1. EMTRICITABINE AND TENOFOVIR DISOPROXIL FUMARATE [Suspect]
     Indication: HIV INFECTION
     Dosage: 300/200 MG Q.D ORAL
     Route: 048
     Dates: start: 20090402, end: 20090429
  2. EMITRICITABINE [Suspect]
     Indication: HIV INFECTION
     Dosage: 200 MG Q.D ORAL
     Route: 048
     Dates: start: 20090511, end: 20090626
  3. RIFAMPICIN [Concomitant]
  4. ISONIAZID [Concomitant]
  5. FLUCONAZOLE [Concomitant]
  6. PYRIDOXINE [Concomitant]
  7. METOCLOPRAMIDE INJ [Concomitant]
  8. CEFTAZIDIME [Concomitant]

REACTIONS (17)
  - ALANINE AMINOTRANSFERASE INCREASED [None]
  - ASPARTATE AMINOTRANSFERASE INCREASED [None]
  - BLOOD ALBUMIN DECREASED [None]
  - BLOOD ALKALINE PHOSPHATASE INCREASED [None]
  - BLOOD CREATININE INCREASED [None]
  - BLOOD POTASSIUM DECREASED [None]
  - DECUBITUS ULCER [None]
  - ELECTROLYTE IMBALANCE [None]
  - ENCEPHALITIS CYTOMEGALOVIRUS [None]
  - GENERAL PHYSICAL HEALTH DETERIORATION [None]
  - HAEMATOCRIT DECREASED [None]
  - HAEMOGLOBIN DECREASED [None]
  - HYPONATRAEMIA [None]
  - ISCHAEMIC CEREBRAL INFARCTION [None]
  - MENINGITIS CRYPTOCOCCAL [None]
  - PSEUDOMONAS INFECTION [None]
  - RED BLOOD CELL COUNT DECREASED [None]
